FAERS Safety Report 8321489-1 (Version None)
Quarter: 2012Q2

REPORT INFORMATION
  Report Type: 
  Country: None (occurrence: None)
  Receive Date: 20120430
  Receipt Date: 20120430
  Transmission Date: 20120825
  Serious: Yes (Other)
  Sender: FDA-Public Use
  Company Number: None

PATIENT
  Age: 44 Year
  Sex: Female
  Weight: 85 kg

DRUGS (3)
  1. PALONOSETRON [Concomitant]
     Route: 042
  2. DEXAMETHASONE [Concomitant]
     Route: 042
  3. DOXORUBICIN HCL [Suspect]
     Indication: OVARIAN CANCER METASTATIC
     Dosage: 98 MG/500 ML D5W
     Route: 041
     Dates: start: 20120427, end: 20120427

REACTIONS (6)
  - NAUSEA [None]
  - INFUSION RELATED REACTION [None]
  - SKIN WARM [None]
  - SKIN REACTION [None]
  - ERYTHEMA [None]
  - FLUSHING [None]
